FAERS Safety Report 22101277 (Version 1)
Quarter: 2023Q1

REPORT INFORMATION
  Report Type: Spontaneous
  Country: JP (occurrence: JP)
  Receive Date: 20230316
  Receipt Date: 20230316
  Transmission Date: 20230417
  Serious: No
  Sender: FDA-Public Use
  Company Number: JP-ALKEM LABORATORIES LIMITED-JP-ALKEM-2022-07908

PATIENT
  Age: 70 Year
  Sex: Female

DRUGS (2)
  1. TIZANIDINE [Suspect]
     Active Substance: TIZANIDINE
     Indication: Pain in extremity
     Dosage: 3 MILLIGRAM, PER DAY
     Route: 065
  2. FLUVOXAMINE [Suspect]
     Active Substance: FLUVOXAMINE
     Indication: Product used for unknown indication
     Dosage: 150 MILLIGRAM, PER DAY
     Route: 065

REACTIONS (5)
  - Drug interaction [Unknown]
  - Heart rate decreased [Recovered/Resolved]
  - Body temperature decreased [Recovered/Resolved]
  - Dry mouth [Recovered/Resolved]
  - Enuresis [Recovered/Resolved]
